FAERS Safety Report 5200960-5 (Version None)
Quarter: 2007Q1

REPORT INFORMATION
  Report Type: 
  Country: None (occurrence: None)
  Receive Date: 20070103
  Receipt Date: 20061220
  Transmission Date: 20070707
  Serious: Yes (Hospitalization)
  Sender: FDA-Public Use
  Company Number: GXKR2006GB08334

PATIENT
  Age: 18 Year
  Sex: Female

DRUGS (3)
  1. DOXYCYCLINE [Suspect]
     Indication: CHLAMYDIAL INFECTION
     Dosage: 100 MG, ORAL
     Route: 048
     Dates: start: 20061122, end: 20061128
  2. LANSOPRAZOLE [Concomitant]
  3. ACETAMINOPHEN [Concomitant]

REACTIONS (1)
  - PANCREATITIS [None]
